FAERS Safety Report 8529554-0 (Version None)
Quarter: 2012Q3

REPORT INFORMATION
  Report Type: 
  Country: None (occurrence: None)
  Receive Date: 20120723
  Receipt Date: 20120711
  Transmission Date: 20120928
  Serious: Yes (Hospitalization, Other)
  Sender: FDA-Public Use
  Company Number: US-GENZYME-LEUK-1000191

PATIENT

DRUGS (4)
  1. LEUKINE [Suspect]
     Dosage: 250 MCG, QD,
     Route: 058
     Dates: end: 20110822
  2. ANTINEOPLASTIC AGENTS [Suspect]
     Indication: MALIGNANT MELANOMA
     Dosage: 10 MG/KG, ON DAY 1
     Route: 042
     Dates: start: 20110425, end: 20110627
  3. ANTINEOPLASTIC AGENTS [Suspect]
     Dosage: 10 MG/KG
     Route: 042
     Dates: end: 20110727
  4. LEUKINE [Suspect]
     Indication: MALIGNANT MELANOMA
     Dosage: 250 MCG, QD
     Route: 058
     Dates: start: 20110425, end: 20110731

REACTIONS (3)
  - HYPOTHYROIDISM [None]
  - SICK SINUS SYNDROME [None]
  - CONDUCTION DISORDER [None]
